FAERS Safety Report 12786015 (Version 2)
Quarter: 2016Q4

REPORT INFORMATION
  Report Type: Report from Study
  Country: CA (occurrence: CA)
  Receive Date: 20160927
  Receipt Date: 20161221
  Transmission Date: 20170207
  Serious: Yes (Death)
  Sender: FDA-Public Use
  Company Number: CA-HLSUS-2016-CA-000477

PATIENT
  Age: 71 Year
  Sex: Male

DRUGS (4)
  1. CARBOLITH [Concomitant]
     Active Substance: LITHIUM CARBONATE
     Dosage: 450 MG (300+150) AT BED TIME
  2. CLOZARIL [Suspect]
     Active Substance: CLOZAPINE
     Indication: SCHIZOPHRENIA
     Route: 048
     Dates: start: 20000330
  3. PMS-FERROUS SULFATE [Concomitant]
     Dosage: 300 MG TWICE DAILY
  4. M-B12 [Concomitant]
     Dosage: 1200 MCG ONCE DAILY MORNING

REACTIONS (2)
  - Cholangiosarcoma [Fatal]
  - Cholangitis [Fatal]
